FAERS Safety Report 25093915 (Version 1)
Quarter: 2025Q1

REPORT INFORMATION
  Report Type: Spontaneous
  Country: US (occurrence: None)
  Receive Date: 20250318
  Receipt Date: 20250318
  Transmission Date: 20250408
  Serious: Yes (Other)
  Sender: FDA-CTU
  Company Number: None

PATIENT
  Age: 69 Year
  Sex: Female
  Weight: 51.75 kg

DRUGS (5)
  1. ALENDRONATE [Suspect]
     Active Substance: ALENDRONATE SODIUM
     Indication: Osteoporosis
     Route: 048
  2. SYNTHROID (LEVOTHYOXINE) [Concomitant]
  3. PEPCID (Famotadine) [Concomitant]
  4. Tylenol or ibuprofen [Concomitant]
  5. VITAMINS [Concomitant]
     Active Substance: VITAMINS

REACTIONS (4)
  - Temporomandibular pain and dysfunction syndrome [None]
  - Exostosis of jaw [None]
  - Mouth ulceration [None]
  - Necrosis [None]

NARRATIVE: CASE EVENT DATE: 20200520
